FAERS Safety Report 23647390 (Version 1)
Quarter: 2024Q1

REPORT INFORMATION
  Report Type: Report from Study
  Country: HR (occurrence: HR)
  Receive Date: 20240319
  Receipt Date: 20240319
  Transmission Date: 20240410
  Serious: Yes (Other)
  Sender: FDA-Public Use
  Company Number: HR-TEVA-VS-3170468

PATIENT
  Age: 75 Year
  Sex: Male

DRUGS (6)
  1. BISOPROLOL [Interacting]
     Active Substance: BISOPROLOL\BISOPROLOL FUMARATE
     Indication: Product used for unknown indication
     Route: 065
  2. INDAPAMIDE\PERINDOPRIL [Concomitant]
     Active Substance: INDAPAMIDE\PERINDOPRIL
     Indication: Product used for unknown indication
     Route: 065
  3. ALLOPURINOL [Concomitant]
     Active Substance: ALLOPURINOL
     Indication: Product used for unknown indication
     Route: 065
  4. RIVAROXABAN [Interacting]
     Active Substance: RIVAROXABAN
     Indication: Atrial fibrillation
     Route: 048
  5. PANTOPRAZOLE [Interacting]
     Active Substance: PANTOPRAZOLE
     Indication: Product used for unknown indication
     Route: 065
  6. INDOMETHACIN [Interacting]
     Active Substance: INDOMETHACIN
     Indication: Product used for unknown indication
     Route: 065

REACTIONS (3)
  - Gastrointestinal haemorrhage [Recovered/Resolved]
  - Drug interaction [Recovered/Resolved]
  - Drug interaction [Recovered/Resolved]
